FAERS Safety Report 14586645 (Version 1)
Quarter: 2018Q1

REPORT INFORMATION
  Report Type: Spontaneous
  Country: US (occurrence: US)
  Receive Date: 20180301
  Receipt Date: 20180301
  Transmission Date: 20180509
  Serious: Yes (Other)
  Sender: FDA-Public Use
  Company Number: US-VALIDUS PHARMACEUTICALS LLC-US-2017VAL001357

PATIENT
  Age: 71 Year
  Sex: Male
  Weight: 89.8 kg

DRUGS (8)
  1. LISINOPRIL. [Concomitant]
     Active Substance: LISINOPRIL
     Indication: PRODUCT USED FOR UNKNOWN INDICATION
     Dosage: UNK
  2. NOVOLIN R [Suspect]
     Active Substance: INSULIN HUMAN
     Indication: TYPE 2 DIABETES MELLITUS
     Dosage: 15-18 U, QID
     Route: 058
     Dates: start: 2007, end: 20170814
  3. NOVOLIN N [Suspect]
     Active Substance: INSULIN HUMAN
     Dosage: 15-18 U, QID
     Route: 058
     Dates: start: 20170817
  4. TOPROL XL [Concomitant]
     Active Substance: METOPROLOL SUCCINATE
     Indication: PRODUCT USED FOR UNKNOWN INDICATION
     Dosage: UNK
  5. LASIX [Suspect]
     Active Substance: FUROSEMIDE
     Indication: OEDEMA
     Dosage: 5 MG, QD
     Route: 048
     Dates: start: 2000, end: 201707
  6. LASIX [Suspect]
     Active Substance: FUROSEMIDE
     Dosage: 5 MG, QD
     Route: 048
     Dates: start: 201707
  7. NOVOLIN N [Suspect]
     Active Substance: INSULIN HUMAN
     Indication: TYPE 2 DIABETES MELLITUS
     Dosage: 15-18 U, QID
     Route: 058
     Dates: start: 2007, end: 20170814
  8. NOVOLIN R [Suspect]
     Active Substance: INSULIN HUMAN
     Dosage: 15-18 U, QID
     Route: 058
     Dates: start: 20170817

REACTIONS (3)
  - Blood glucose increased [Unknown]
  - Orthostatic hypotension [Not Recovered/Not Resolved]
  - Laceration [Recovering/Resolving]

NARRATIVE: CASE EVENT DATE: 201705
